FAERS Safety Report 21801587 (Version 2)
Quarter: 2023Q1

REPORT INFORMATION
  Report Type: Spontaneous
  Country: DE (occurrence: DE)
  Receive Date: 20221230
  Receipt Date: 20230120
  Transmission Date: 20230418
  Serious: Yes (Hospitalization)
  Sender: FDA-Public Use
  Company Number: DE-009507513-2212DEU010307

PATIENT
  Age: 79 Year
  Sex: Male

DRUGS (1)
  1. IVERMECTIN [Suspect]
     Active Substance: IVERMECTIN
     Indication: Dirofilariasis
     Dosage: 200 MICROGRAM PER KILOGRAM, ONCE
     Route: 048

REACTIONS (3)
  - Dizziness [Unknown]
  - Ill-defined disorder [Unknown]
  - Off label use [Unknown]
